FAERS Safety Report 17000780 (Version 1)
Quarter: 2019Q4

REPORT INFORMATION
  Report Type: Spontaneous
  Country: CN (occurrence: CN)
  Receive Date: 20191106
  Receipt Date: 20191106
  Transmission Date: 20200122
  Serious: Yes (Hospitalization)
  Sender: FDA-Public Use
  Company Number: CN-ELI_LILLY_AND_COMPANY-CN201910015074

PATIENT
  Sex: Male

DRUGS (4)
  1. ALIMTA [Suspect]
     Active Substance: PEMETREXED DISODIUM
     Indication: LUNG ADENOCARCINOMA
     Dosage: 0.8 G, DAILY
     Route: 041
     Dates: start: 20190915, end: 20190915
  2. GLUCOSE [Concomitant]
     Active Substance: DEXTROSE
     Indication: MEDICATION DILUTION
     Dosage: 500 ML, DAILY
     Route: 041
     Dates: start: 20190915, end: 20190915
  3. CARBOPLATIN. [Suspect]
     Active Substance: CARBOPLATIN
     Indication: LUNG ADENOCARCINOMA
     Dosage: 600 MG, DAILY
     Route: 041
     Dates: start: 20190915, end: 20190915
  4. SODIUM CHLORIDE. [Concomitant]
     Active Substance: SODIUM CHLORIDE
     Indication: MEDICATION DILUTION
     Dosage: 100 ML, DAILY
     Route: 041
     Dates: start: 20190915, end: 20190915

REACTIONS (2)
  - Haematemesis [Recovering/Resolving]
  - Gastrointestinal mucosal disorder [Recovering/Resolving]

NARRATIVE: CASE EVENT DATE: 201909
